FAERS Safety Report 23082612 (Version 2)
Quarter: 2023Q4

REPORT INFORMATION
  Report Type: Spontaneous
  Country: US (occurrence: US)
  Receive Date: 20231019
  Receipt Date: 20231109
  Transmission Date: 20240109
  Serious: Yes (Other)
  Sender: FDA-Public Use
  Company Number: US-TAKEDA-2023TUS099946

PATIENT
  Age: 18 Year
  Sex: Male
  Weight: 67 kg

DRUGS (9)
  1. LIVTENCITY [Suspect]
     Active Substance: MARIBAVIR
     Indication: Neutropenia
     Dosage: 800 MILLIGRAM, BID
     Route: 065
     Dates: start: 20230928
  2. LIVTENCITY [Suspect]
     Active Substance: MARIBAVIR
     Indication: Cytomegalovirus infection
     Dosage: UNK UNK, QD
     Route: 048
     Dates: end: 20231010
  3. EPOGEN [Suspect]
     Active Substance: ERYTHROPOIETIN
     Indication: Product used for unknown indication
     Dosage: UNK
     Route: 065
  4. CARBAMAZEPINE [Concomitant]
     Active Substance: CARBAMAZEPINE
     Dosage: UNK
     Route: 065
  5. CARBATROL [Concomitant]
     Active Substance: CARBAMAZEPINE
     Dosage: 600 MILLIGRAM, QD
     Route: 065
  6. CLOBAZAM [Concomitant]
     Active Substance: CLOBAZAM
     Dosage: 30 MILLIGRAM, QD
     Route: 065
  7. LEVETIRACETAM [Concomitant]
     Active Substance: LEVETIRACETAM
     Dosage: 1000 MILLIGRAM, QD
     Route: 065
  8. TACROLIMUS [Concomitant]
     Active Substance: TACROLIMUS
     Dosage: 16 MILLIGRAM, QD
     Route: 065
  9. PREDNISONE [Concomitant]
     Active Substance: PREDNISONE
     Dosage: 5 MILLIGRAM, QD
     Route: 065

REACTIONS (4)
  - Seizure [Unknown]
  - Muscular weakness [Recovered/Resolved]
  - Gait inability [Unknown]
  - Product use in unapproved indication [Unknown]

NARRATIVE: CASE EVENT DATE: 20230928
